FAERS Safety Report 10075593 (Version 3)
Quarter: 2014Q4

REPORT INFORMATION
  Report Type: Spontaneous
  Country: FR (occurrence: FR)
  Receive Date: 20140414
  Receipt Date: 20141017
  Transmission Date: 20150528
  Serious: Yes (Other)
  Sender: FDA-Public Use
  Company Number: FR-JNJFOC-20140406961

PATIENT
  Age: 87 Year
  Sex: Female

DRUGS (2)
  1. LOVENOX [Concomitant]
     Active Substance: ENOXAPARIN SODIUM
     Route: 065
     Dates: start: 20091020, end: 20091109
  2. XARELTO [Suspect]
     Active Substance: RIVAROXABAN
     Indication: PRODUCT USED FOR UNKNOWN INDICATION
     Route: 048
     Dates: start: 2009, end: 2009

REACTIONS (7)
  - Cerebral ischaemia [Recovering/Resolving]
  - Disorientation [Recovering/Resolving]
  - Femoral neck fracture [Unknown]
  - Agitation postoperative [Unknown]
  - Haemorrhage [Unknown]
  - Anaemia [Unknown]
  - Femoral neck fracture [Unknown]

NARRATIVE: CASE EVENT DATE: 20091016
